FAERS Safety Report 4742085-9 (Version None)
Quarter: 2005Q3

REPORT INFORMATION
  Report Type: 
  Country: None (occurrence: None)
  Receive Date: 20050808
  Receipt Date: 20050721
  Transmission Date: 20060218
  Serious: Yes (Death, Life-Threatening, Hospitalization, Disabling)
  Sender: FDA-Public Use
  Company Number: EWC050543914

PATIENT
  Age: 79 Year
  Sex: Female

DRUGS (18)
  1. FORTEO [Suspect]
     Indication: OSTEOPOROSIS
     Dosage: 20 UG/1 DAY
     Dates: start: 20041026, end: 20050320
  2. REMERON (MIRTAZAPINE ORIFARM) [Concomitant]
  3. CITODON [Concomitant]
  4. SALURES-K [Concomitant]
  5. LOMIR SRO (ISRADIPINE) [Concomitant]
  6. ENALAPRIL MALEATE [Concomitant]
  7. FOLACIN [Concomitant]
  8. CALCICHEW D3 [Concomitant]
  9. PLAVIX [Concomitant]
  10. FURIX RETARD (FUROSEMIDE) [Concomitant]
  11. SYMBICORT FORTE TURBUHALER [Concomitant]
  12. OXIS TURBUHALLER (FORMOTEROL FUMARATE) [Concomitant]
  13. SOBRIL (OXAZEPAM) [Concomitant]
  14. XANOR (ALPRAZOLAM DUM) [Concomitant]
  15. SPIRIVA         (TIOPROPIUM BROMIDE) [Concomitant]
  16. ZOCORD    (SIMVASTATIN RATIOPHARM) [Concomitant]
  17. FENURIL [Concomitant]
  18. TRIOBE [Concomitant]

REACTIONS (11)
  - ARTERIAL DISORDER [None]
  - ASTHENIA [None]
  - CARDIAC FAILURE [None]
  - DIARRHOEA [None]
  - HYPONATRAEMIA [None]
  - IMPAIRED HEALING [None]
  - MYOCARDIAL INFARCTION [None]
  - RESPIRATORY FAILURE [None]
  - SHOCK [None]
  - SKIN ULCER [None]
  - WEIGHT DECREASED [None]
